FAERS Safety Report 4901390-3 (Version None)
Quarter: 2006Q1

REPORT INFORMATION
  Report Type: 
  Country: None (occurrence: None)
  Receive Date: 20060206
  Receipt Date: 20060127
  Transmission Date: 20060701
  Serious: Yes (Hospitalization)
  Sender: FDA-Public Use
  Company Number: US-AVENTIS-200610886GDDC

PATIENT
  Age: 68 Year
  Sex: Male
  Weight: 80.8 kg

DRUGS (6)
  1. TAXOTERE [Suspect]
     Indication: OROPHARYNGEAL CANCER STAGE UNSPECIFIED
     Dosage: DOSE: UNK
     Route: 042
  2. CISPLATIN [Suspect]
     Indication: OROPHARYNGEAL CANCER STAGE UNSPECIFIED
     Dosage: DOSE: UNK
     Route: 042
  3. FLUOROURACIL [Suspect]
     Indication: OROPHARYNGEAL CANCER STAGE UNSPECIFIED
     Dosage: DOSE: UNK
     Route: 042
  4. CELEXA [Concomitant]
     Route: 048
  5. KAYEXALATE [Concomitant]
     Dosage: DOSE: UNK
  6. REGLAN [Concomitant]
     Dosage: DOSE: 10 MG FOUR TIMES A DAY

REACTIONS (7)
  - BLADDER DISTENSION [None]
  - BLOOD PRESSURE INCREASED [None]
  - HYPERTENSION [None]
  - INCONTINENCE [None]
  - RENAL FAILURE ACUTE [None]
  - URINARY INCONTINENCE [None]
  - URINARY RETENTION [None]
